FAERS Safety Report 25807815 (Version 4)
Quarter: 2025Q4

REPORT INFORMATION
  Report Type: Spontaneous
  Country: CA (occurrence: CA)
  Receive Date: 20250916
  Receipt Date: 20251107
  Transmission Date: 20260118
  Serious: Yes (Hospitalization, Other)
  Sender: PFIZER
  Company Number: CA-PFIZER INC-202500173103

PATIENT
  Age: 20 Year
  Sex: Male
  Weight: 48 kg

DRUGS (3)
  1. IXIFI [Suspect]
     Active Substance: INFLIXIMAB-QBTX
     Indication: Colitis ulcerative
     Dosage: 10 MG/KG, W 0, 2, 6 THEN EVERY 8 WEEKS
     Route: 042
     Dates: start: 20250718
  2. IXIFI [Suspect]
     Active Substance: INFLIXIMAB-QBTX
     Dosage: 10 MG/KG, W 0, 2, 6 THEN EVERY 8 WEEKS
     Route: 042
     Dates: start: 20250801
  3. IXIFI [Suspect]
     Active Substance: INFLIXIMAB-QBTX
     Dosage: 480 MG, WEEK 6 INDUCTION DOSE (10MG/KG, W 0, 2, 6 THEN EVERY 8 WEEKS)
     Route: 042
     Dates: start: 20250828

REACTIONS (2)
  - Large intestine perforation [Unknown]
  - Pruritus [Recovered/Resolved]

NARRATIVE: CASE EVENT DATE: 20250828
